FAERS Safety Report 7509826-9 (Version None)
Quarter: 2011Q2

REPORT INFORMATION
  Report Type: 
  Country: None (occurrence: None)
  Receive Date: 20110527
  Receipt Date: 20110523
  Transmission Date: 20111010
  Serious: Yes (Other)
  Sender: FDA-Public Use
  Company Number: A0928564A

PATIENT
  Age: 49 Year
  Sex: Female

DRUGS (4)
  1. MOTRIN [Concomitant]
  2. BUPROPION HYDROCHLORIDE [Suspect]
     Indication: DEPRESSION
     Dosage: 100MG THREE TIMES PER DAY
     Route: 048
     Dates: start: 20110501
  3. TOPAMAX [Concomitant]
  4. STOOL SOFTENERS [Concomitant]

REACTIONS (4)
  - DEPRESSION [None]
  - MEDICATION ERROR [None]
  - HALLUCINATION [None]
  - DRUG INEFFECTIVE [None]
